FAERS Safety Report 11340178 (Version 1)
Quarter: 2015Q3

REPORT INFORMATION
  Report Type: Spontaneous
  Country: US (occurrence: None)
  Receive Date: 20150629
  Receipt Date: 20150629
  Transmission Date: 20151125
  Serious: No
  Sender: FDA-Public Use
  Company Number: A-US2014-106357

PATIENT
  Age: 28 Year
  Sex: Female

DRUGS (6)
  1. DIGOXIN. [Concomitant]
     Active Substance: DIGOXIN
  2. VELETRI [Suspect]
     Active Substance: EPOPROSTENOL
     Indication: COR PULMONALE CHRONIC
     Dosage: 31.5 NG/KG, PER MIN, INTRAVENOUS
     Route: 042
     Dates: start: 20131022
  3. SILDENAFIL. [Concomitant]
     Active Substance: SILDENAFIL
  4. CELEXA [Concomitant]
     Active Substance: CITALOPRAM HYDROBROMIDE
  5. WARFARIN (WARFARIN) [Suspect]
     Active Substance: WARFARIN
     Indication: DEEP VEIN THROMBOSIS
  6. OPSUMIT [Suspect]
     Active Substance: MACITENTAN
     Indication: COR PULMONALE CHRONIC
     Route: 048

REACTIONS (2)
  - Acrochordon [None]
  - Haemorrhage [None]

NARRATIVE: CASE EVENT DATE: 20140911
